FAERS Safety Report 23343134 (Version 1)
Quarter: 2023Q4

REPORT INFORMATION
  Report Type: Spontaneous
  Country: US (occurrence: None)
  Receive Date: 20231226
  Receipt Date: 20231226
  Transmission Date: 20240109
  Serious: Yes (Hospitalization)
  Sender: FDA-Public Use
  Company Number: None

PATIENT
  Sex: Female

DRUGS (6)
  1. XELJANZ [Suspect]
     Active Substance: TOFACITINIB CITRATE
     Indication: Rheumatoid arthritis
     Dosage: 5MG TWICE A DAY ORAL?
     Route: 048
     Dates: start: 201902
  2. XELJANZ [Suspect]
     Active Substance: TOFACITINIB CITRATE
     Indication: Rheumatoid factor positive
  3. XELJANZ [Suspect]
     Active Substance: TOFACITINIB CITRATE
     Indication: Pulmonary hypertension
  4. XELJANZ [Suspect]
     Active Substance: TOFACITINIB CITRATE
     Indication: Asthma
  5. AMBRISENTAN [Concomitant]
     Active Substance: AMBRISENTAN
  6. NUCALA [Concomitant]
     Active Substance: MEPOLIZUMAB

REACTIONS (1)
  - Asthma [None]
